FAERS Safety Report 4817287-3 (Version None)
Quarter: 2005Q4

REPORT INFORMATION
  Report Type: 
  Country: None (occurrence: None)
  Receive Date: 20051018
  Receipt Date: 20041115
  Transmission Date: 20060501
  Serious: Yes (Hospitalization, Other)
  Sender: FDA-Public Use
  Company Number: PHEH2004US05416

PATIENT
  Age: 31 Year
  Sex: Female
  Weight: 48.5 kg

DRUGS (3)
  1. ZOMETA [Suspect]
     Indication: METASTASES TO BONE
     Dosage: 4 MG MONTHLY, INTRAVENOUS
     Route: 042
     Dates: start: 20040204
  2. TAMOXIFEN CITRATE [Concomitant]
  3. EFFEXOR [Concomitant]

REACTIONS (7)
  - ARTHRALGIA [None]
  - CALCIUM IONISED DECREASED [None]
  - HYPOCALCAEMIA [None]
  - MUSCLE SPASMS [None]
  - MUSCLE TIGHTNESS [None]
  - MYALGIA [None]
  - PARAESTHESIA [None]
